FAERS Safety Report 4365028-9 (Version None)
Quarter: 2004Q2

REPORT INFORMATION
  Report Type: 
  Country: None (occurrence: None)
  Receive Date: 20040521
  Receipt Date: 20040507
  Transmission Date: 20050107
  Serious: Yes (Other)
  Sender: FDA-Public Use
  Company Number: B0332527A

PATIENT

DRUGS (1)
  1. EPIVIR [Suspect]
     Dosage: 100 MG/PER DAY/YEARS

REACTIONS (1)
  - HEPATIC FAILURE [None]
